FAERS Safety Report 6167991-2 (Version None)
Quarter: 2009Q2

REPORT INFORMATION
  Report Type: 
  Country: None (occurrence: None)
  Receive Date: 20090427
  Receipt Date: 20090414
  Transmission Date: 20091009
  Serious: Yes (Other)
  Sender: FDA-Public Use
  Company Number: US-ROCHE-623376

PATIENT
  Sex: Female
  Weight: 63.5 kg

DRUGS (2)
  1. BONIVA [Suspect]
     Indication: OSTEOPOROSIS
     Route: 048
     Dates: start: 20070101, end: 20080714
  2. AMBIEN [Concomitant]
     Indication: INSOMNIA
     Route: 048
     Dates: start: 20010101

REACTIONS (6)
  - IMPAIRED WORK ABILITY [None]
  - MYALGIA [None]
  - NERVOUS SYSTEM DISORDER [None]
  - PERICARDIAL EFFUSION [None]
  - RESTLESS LEGS SYNDROME [None]
  - VOMITING [None]
